FAERS Safety Report 10150383 (Version 1)
Quarter: 2014Q2

REPORT INFORMATION
  Report Type: Spontaneous
  Country: CA (occurrence: CA)
  Receive Date: 20140502
  Receipt Date: 20140502
  Transmission Date: 20141212
  Serious: Yes (Hospitalization)
  Sender: FDA-Public Use
  Company Number: CA-009507513-1405CAN000441

PATIENT
  Age: 60 Year
  Sex: Male

DRUGS (2)
  1. JANUVIA [Suspect]
     Indication: DIABETES MELLITUS
     Dosage: 100 MG, QD
     Route: 065
     Dates: start: 201309, end: 201402
  2. PREDNISONE [Concomitant]
     Route: 065

REACTIONS (1)
  - Tubulointerstitial nephritis [Unknown]
